FAERS Safety Report 12900530 (Version 2)
Quarter: 2016Q4

REPORT INFORMATION
  Report Type: Report from Study
  Country: US (occurrence: US)
  Receive Date: 20161101
  Receipt Date: 20161209
  Transmission Date: 20170207
  Serious: Yes (Hospitalization, Other)
  Sender: FDA-Public Use
  Company Number: US-ACTELION-A-NJ2016-144547

PATIENT
  Age: 76 Year
  Sex: Female

DRUGS (2)
  1. XARELTO [Concomitant]
     Active Substance: RIVAROXABAN
  2. OPSUMIT [Suspect]
     Active Substance: MACITENTAN
     Indication: PULMONARY HYPERTENSION
     Dosage: 10 MG, QD
     Route: 048
     Dates: start: 20140224, end: 20160830

REACTIONS (10)
  - Amnesia [Unknown]
  - Dyspnoea [Unknown]
  - Chills [Unknown]
  - Pyrexia [Unknown]
  - Sepsis [Unknown]
  - Fear of falling [Unknown]
  - Asthenia [Unknown]
  - Dizziness [Unknown]
  - Hepatic cirrhosis [Unknown]
  - Vomiting [Unknown]

NARRATIVE: CASE EVENT DATE: 20160828
